FAERS Safety Report 19046611 (Version 5)
Quarter: 2022Q1

REPORT INFORMATION
  Report Type: Other
  Country: CA (occurrence: CA)
  Receive Date: 20210322
  Receipt Date: 20220203
  Transmission Date: 20220423
  Serious: Yes (Other)
  Sender: FDA-Public Use
  Company Number: CA-CELLTRION INC.-2021CA003578

PATIENT

DRUGS (13)
  1. TRASTUZUMAB [Suspect]
     Active Substance: TRASTUZUMAB
     Indication: Metastatic salivary gland cancer
     Dosage: 480 MG, 1 EVERY 21 DAYS
     Route: 042
  2. TRASTUZUMAB [Suspect]
     Active Substance: TRASTUZUMAB
     Dosage: UNK
     Route: 042
  3. TRASTUZUMAB [Suspect]
     Active Substance: TRASTUZUMAB
     Dosage: 360 MG, 1 EVERY 21 DAYS
     Route: 042
  4. TRASTUZUMAB [Suspect]
     Active Substance: TRASTUZUMAB
     Dosage: 340 MG, 1 EVERY 21 DAYS
     Route: 042
  5. KADCYLA [Suspect]
     Active Substance: ADO-TRASTUZUMAB EMTANSINE
     Indication: Metastatic salivary gland cancer
     Dosage: 250 MG, 1 EVERY 3 WEEKS
     Route: 042
  6. PERJETA [Suspect]
     Active Substance: PERTUZUMAB
     Indication: Metastatic salivary gland cancer
     Dosage: 255 MG, 1 EVERY 3 WEEKS
     Route: 042
  7. PERJETA [Suspect]
     Active Substance: PERTUZUMAB
     Indication: Metastatic salivary gland cancer
     Dosage: 1 EVERY 3 WEEKS
     Route: 042
  8. CAPECITABINE [Concomitant]
     Active Substance: CAPECITABINE
     Dosage: 2500 MG
     Route: 048
  9. CAPECITABINE [Concomitant]
     Active Substance: CAPECITABINE
     Dosage: 1500 MILLIGRAM
     Route: 048
  10. LOPERAMIDE [Concomitant]
     Active Substance: LOPERAMIDE
     Dosage: 2 MG
     Route: 048
  11. IRBINITINIB [Concomitant]
     Active Substance: IRBINITINIB
     Dosage: 300 MG, 2 EVERY 1 DAYS
     Route: 048
  12. PROCHLORPERAZINE [Concomitant]
     Active Substance: PROCHLORPERAZINE
     Dosage: 10 MG, 1 EVERY 4 HOURS
     Route: 048
  13. VALTREX [Concomitant]
     Active Substance: VALACYCLOVIR HYDROCHLORIDE

REACTIONS (10)
  - Blood creatine increased [Unknown]
  - Haematocrit decreased [Unknown]
  - Mean platelet volume decreased [Unknown]
  - Red cell distribution width increased [Unknown]
  - Haemoglobin decreased [Unknown]
  - Red blood cell count decreased [Unknown]
  - Lymphocyte count decreased [Unknown]
  - Weight decreased [Unknown]
  - Urinary tract disorder [Unknown]
  - Off label use [Unknown]
